FAERS Safety Report 23676880 (Version 6)
Quarter: 2024Q4

REPORT INFORMATION
  Report Type: Report from Study
  Country: US (occurrence: US)
  Receive Date: 20240327
  Receipt Date: 20241230
  Transmission Date: 20250114
  Serious: Yes (Hospitalization)
  Sender: INSMED
  Company Number: US-INSMED, INC.-2024-01095-US

PATIENT
  Sex: Female

DRUGS (1)
  1. ARIKAYCE [Suspect]
     Active Substance: AMIKACIN
     Indication: Product used for unknown indication
     Dosage: 590 MILLIGRAM, QD
     Route: 055
     Dates: start: 202301, end: 2024

REACTIONS (6)
  - Hospitalisation [Unknown]
  - Pleural effusion [Unknown]
  - Atrial fibrillation [Unknown]
  - Respiratory distress [Unknown]
  - Therapy interrupted [Unknown]
  - Product dose omission issue [Unknown]
